FAERS Safety Report 7526868-8 (Version None)
Quarter: 2011Q2

REPORT INFORMATION
  Report Type: 
  Country: None (occurrence: None)
  Receive Date: 20110606
  Receipt Date: 20110527
  Transmission Date: 20111010
  Serious: Yes (Hospitalization)
  Sender: FDA-Public Use
  Company Number: PHHO2010DE03380

PATIENT
  Sex: Female

DRUGS (4)
  1. NEORAL [Suspect]
     Indication: RENAL TRANSPLANT
     Dosage: 400 MG
     Route: 048
     Dates: start: 20100213, end: 20100228
  2. MYFORTIC [Suspect]
     Indication: RENAL TRANSPLANT
     Dosage: 1400 MG, UNK
     Route: 048
     Dates: start: 20100213, end: 20100228
  3. PREDNISONE [Suspect]
     Indication: RENAL TRANSPLANT
     Dosage: 25 MG
     Dates: start: 20100213, end: 20110310
  4. NO TREATMENT RECEIVED [Suspect]
     Indication: RENAL TRANSPLANT
     Dosage: NO TREATMENT

REACTIONS (4)
  - VENOUS THROMBOSIS [None]
  - HYPERAEMIA [None]
  - NECROSIS [None]
  - BLOOD CREATININE INCREASED [None]
